FAERS Safety Report 13995723 (Version 3)
Quarter: 2017Q4

REPORT INFORMATION
  Report Type: Spontaneous
  Country: US (occurrence: US)
  Receive Date: 20170921
  Receipt Date: 20171201
  Transmission Date: 20180321
  Serious: No
  Sender: FDA-Public Use
  Company Number: US-PFIZER INC-2017404777

PATIENT
  Age: 54 Year
  Sex: Female
  Weight: 72.57 kg

DRUGS (1)
  1. SERTRALINE HCL [Suspect]
     Active Substance: SERTRALINE HYDROCHLORIDE
     Indication: OBSESSIVE-COMPULSIVE DISORDER
     Dosage: 200 MG, 1X/DAY
     Route: 048

REACTIONS (7)
  - Malaise [Unknown]
  - Crying [Unknown]
  - Insomnia [Unknown]
  - Feeling abnormal [Unknown]
  - Drug effect incomplete [Recovered/Resolved]
  - Anxiety [Unknown]
  - Product quality issue [Unknown]
